FAERS Safety Report 23512069 (Version 1)
Quarter: 2024Q1

REPORT INFORMATION
  Report Type: Spontaneous
  Country: US (occurrence: US)
  Receive Date: 20240212
  Receipt Date: 20240212
  Transmission Date: 20240409
  Serious: No
  Sender: FDA-Public Use
  Company Number: US-SA-SAC20240205001225

PATIENT
  Age: 25 Year
  Sex: Female

DRUGS (6)
  1. DUPIXENT [Suspect]
     Active Substance: DUPILUMAB
     Indication: Dermatitis atopic
     Dosage: 300MG EVERY OTHER WEEK
     Route: 058
     Dates: start: 20231102
  2. ADBRY [Concomitant]
     Active Substance: TRALOKINUMAB-LDRM
  3. MELOXICAM [Concomitant]
     Active Substance: MELOXICAM
  4. ACCUTANE [Concomitant]
     Active Substance: ISOTRETINOIN
  5. METHYLPREDNISOLONE [Concomitant]
     Active Substance: METHYLPREDNISOLONE
  6. LORATADINE [Concomitant]
     Active Substance: LORATADINE

REACTIONS (3)
  - Conjunctivitis [Unknown]
  - Rash [Unknown]
  - Arthralgia [Unknown]

NARRATIVE: CASE EVENT DATE: 20231102
